FAERS Safety Report 5745376-8 (Version None)
Quarter: 2008Q2

REPORT INFORMATION
  Report Type: 
  Country: None (occurrence: None)
  Receive Date: 20080521
  Receipt Date: 20080509
  Transmission Date: 20081010
  Serious: Yes (Hospitalization, Other)
  Sender: FDA-Public Use
  Company Number: BR-JNJFOC-20080405070

PATIENT
  Age: 9 Year
  Sex: Female

DRUGS (1)
  1. LEVAMISOLE [Suspect]
     Indication: SKIN PAPILLOMA
     Route: 065

REACTIONS (4)
  - DRUG ADMINISTRATION ERROR [None]
  - LEUKOENCEPHALOPATHY [None]
  - PYREXIA [None]
  - RASH [None]
